FAERS Safety Report 6402622-5 (Version None)
Quarter: 2009Q4

REPORT INFORMATION
  Report Type: 
  Country: None (occurrence: None)
  Receive Date: 20091009
  Receipt Date: 20090929
  Transmission Date: 20100525
  Serious: Yes (Hospitalization)
  Sender: FDA-Public Use
  Company Number: 1000009213

PATIENT
  Age: 80 Year
  Sex: Male

DRUGS (11)
  1. NEBIVOLOL HCL [Suspect]
     Dosage: 5 MG (5 MG, 1 IN 1 D), ORAL
     Route: 048
     Dates: end: 20090601
  2. LERCANIDIPINE [Concomitant]
  3. ACETYLSALICYLATE LYSINE [Concomitant]
  4. RAMIPRIL [Concomitant]
  5. FUROSEMIDE [Concomitant]
  6. URAPIDIL [Concomitant]
  7. DIFFU K [Concomitant]
  8. CLOPIDOGREL [Concomitant]
  9. NITROGLYCERIN [Concomitant]
  10. LANTUS [Concomitant]
  11. NOVORAPID [Concomitant]

REACTIONS (8)
  - CARDIAC FAILURE [None]
  - CHEST PAIN [None]
  - DYSPNOEA [None]
  - ELECTROCARDIOGRAM P WAVE ABNORMAL [None]
  - SUPRAVENTRICULAR EXTRASYSTOLES [None]
  - SUPRAVENTRICULAR TACHYCARDIA [None]
  - VENTRICULAR ASYSTOLE [None]
  - VENTRICULAR EXTRASYSTOLES [None]
